FAERS Safety Report 6499932-2 (Version None)
Quarter: 2009Q4

REPORT INFORMATION
  Report Type: 
  Country: None (occurrence: None)
  Receive Date: 20091216
  Receipt Date: 20091208
  Transmission Date: 20100525
  Serious: Yes (Hospitalization, Other)
  Sender: FDA-Public Use
  Company Number: DE-RANBAXY-2009RR-29667

PATIENT
  Sex: Male
  Weight: 74 kg

DRUGS (1)
  1. AMOXICILLIN [Suspect]
     Dosage: UNK
     Dates: start: 20091001, end: 20091006

REACTIONS (1)
  - APLASTIC ANAEMIA [None]
